FAERS Safety Report 22003189 (Version 2)
Quarter: 2023Q1

REPORT INFORMATION
  Report Type: Report from Study
  Country: CA (occurrence: CA)
  Receive Date: 20230217
  Receipt Date: 20230224
  Transmission Date: 20230417
  Serious: No
  Sender: FDA-Public Use
  Company Number: CA-ABBVIE-4309642

PATIENT
  Age: 71 Year
  Sex: Female

DRUGS (2)
  1. RINVOQ [Suspect]
     Active Substance: UPADACITINIB
     Indication: Dermatitis atopic
     Dosage: FORM STRENGTH-15 MILLIGRAMS
     Route: 048
     Dates: end: 202209
  2. RINVOQ [Suspect]
     Active Substance: UPADACITINIB
     Indication: Dermatitis atopic
     Dosage: FORM STRENGTH-15 MILLIGRAMS
     Route: 048

REACTIONS (3)
  - COVID-19 [Unknown]
  - Decreased appetite [Unknown]
  - Influenza [Unknown]

NARRATIVE: CASE EVENT DATE: 20230210
